FAERS Safety Report 9285718 (Version 3)
Quarter: 2013Q3

REPORT INFORMATION
  Report Type: Spontaneous
  Country: JP (occurrence: None)
  Receive Date: 20130507
  Receipt Date: 20130729
  Transmission Date: 20140515
  Serious: Yes (Other)
  Sender: FDA-Public Use
  Company Number: 2013-001291

PATIENT
  Age: 79 Year
  Sex: Female

DRUGS (1)
  1. ACTONEL [Suspect]
     Route: 048

REACTIONS (2)
  - Atypical femur fracture [None]
  - Bone disorder [None]
